FAERS Safety Report 8520818-3 (Version None)
Quarter: 2012Q3

REPORT INFORMATION
  Report Type: 
  Country: None (occurrence: None)
  Receive Date: 20120719
  Receipt Date: 20120709
  Transmission Date: 20120928
  Serious: Yes (Death, Hospitalization)
  Sender: FDA-Public Use
  Company Number: US-PFIZER INC-2009217003

PATIENT
  Sex: Female
  Weight: 63.49 kg

DRUGS (6)
  1. PLAVIX [Concomitant]
     Dosage: UNK
  2. OXYCONTIN [Suspect]
     Indication: BACK PAIN
     Dosage: 40 MG, 2X/DAY
     Route: 065
     Dates: start: 20020101
  3. OXYCODONE HCL [Suspect]
     Indication: BACK PAIN
     Dosage: 5 MG, 2X/DAY
     Route: 065
     Dates: start: 20020101
  4. ADVAIR DISKUS 100/50 [Concomitant]
     Dosage: UNK
  5. MORPHINE SULFATE (KADIAN) [Suspect]
     Indication: PAIN
     Dosage: 40 MG, UNK
     Route: 065
  6. OXYCONTIN [Suspect]
     Indication: BACK DISORDER
     Dosage: 80 MG, 2X/DAY
     Route: 065

REACTIONS (6)
  - PNEUMONIA [None]
  - AORTIC ANEURYSM RUPTURE [None]
  - MYOCARDIAL INFARCTION [None]
  - OVERDOSE [None]
  - ARTERIOSCLEROSIS CORONARY ARTERY [None]
  - LUNG DISORDER [None]
